FAERS Safety Report 5271457-1 (Version None)
Quarter: 2007Q1

REPORT INFORMATION
  Report Type: 
  Country: None (occurrence: None)
  Receive Date: 20070321
  Receipt Date: 20070309
  Transmission Date: 20070707
  Serious: Yes (Other)
  Sender: FDA-Public Use
  Company Number: US-SHR-US-2006-034908

PATIENT
  Age: 55 Year
  Sex: Female

DRUGS (6)
  1. MAGNEVIST [Suspect]
     Indication: NUCLEAR MAGNETIC RESONANCE IMAGING
     Dosage: 35 ML, 1 DOSE
     Dates: start: 20060301, end: 20060301
  2. MAGNEVIST [Suspect]
     Dosage: 15 ML, 1 DOSE
     Dates: start: 20040701, end: 20040701
  3. OMNISCAN [Concomitant]
     Indication: NUCLEAR MAGNETIC RESONANCE IMAGING
     Dosage: 15 ML, 1 DOSE
     Dates: start: 20040401, end: 20040401
  4. ULTRAVIST (PHARMACY BULK) [Concomitant]
     Indication: ANGIOGRAM
     Dosage: 40 ML, 1 DOSE
     Dates: start: 20040401, end: 20040401
  5. ULTRAVIST (PHARMACY BULK) [Concomitant]
     Dosage: 50 ML, 1 DOSE
     Dates: start: 20040701, end: 20040701
  6. NEURONTIN [Concomitant]
     Indication: NEUROPATHY

REACTIONS (12)
  - ABASIA [None]
  - ARTHRALGIA [None]
  - DRY SKIN [None]
  - FALL [None]
  - NEPHROGENIC FIBROSING DERMOPATHY [None]
  - NEUROPATHY PERIPHERAL [None]
  - OEDEMA PERIPHERAL [None]
  - PRURITUS [None]
  - RASH [None]
  - SKIN DISCOLOURATION [None]
  - SKIN DISORDER [None]
  - SKIN HYPERTROPHY [None]
